FAERS Safety Report 12764123 (Version 2)
Quarter: 2016Q3

REPORT INFORMATION
  Report Type: Spontaneous
  Country: US (occurrence: US)
  Receive Date: 20160920
  Receipt Date: 20160929
  Transmission Date: 20161109
  Serious: Yes (Hospitalization)
  Sender: FDA-Public Use
  Company Number: US-BAUSCH-BL-2016-022941

PATIENT
  Age: 67 Year
  Sex: Female

DRUGS (3)
  1. XIFAXAN [Suspect]
     Active Substance: RIFAXIMIN
     Indication: LIVER DISORDER
     Route: 048
     Dates: start: 201608
  2. LACTULOSE. [Suspect]
     Active Substance: LACTULOSE
     Dosage: 10-15 ML
     Route: 048
  3. LACTULOSE. [Suspect]
     Active Substance: LACTULOSE
     Indication: PRODUCT USED FOR UNKNOWN INDICATION
     Dosage: 10-15 ML
     Route: 048

REACTIONS (5)
  - Headache [Recovered/Resolved]
  - Feeling abnormal [Recovered/Resolved]
  - Ammonia increased [Recovered/Resolved]
  - Somnolence [Recovered/Resolved]
  - Drug dose omission [Unknown]

NARRATIVE: CASE EVENT DATE: 201609
